FAERS Safety Report 23218816 (Version 1)
Quarter: 2023Q4

REPORT INFORMATION
  Report Type: Spontaneous
  Country: US (occurrence: US)
  Receive Date: 20231122
  Receipt Date: 20231122
  Transmission Date: 20240110
  Serious: Yes (Other)
  Sender: FDA-Public Use
  Company Number: US-GLAND PHARMA LIMITED-2023US004211

PATIENT

DRUGS (7)
  1. LABETALOL HYDROCHLORIDE [Suspect]
     Active Substance: LABETALOL HYDROCHLORIDE
     Indication: Blood pressure increased
     Route: 065
  2. METYRAPONE [Concomitant]
     Active Substance: METYRAPONE
     Indication: Product used for unknown indication
     Dosage: 250 MG, BID
  3. METYRAPONE [Concomitant]
     Active Substance: METYRAPONE
     Dosage: 250 MG, TID
  4. BETAMETHASONE [Concomitant]
     Active Substance: BETAMETHASONE\BETAMETHASONE DIPROPIONATE
     Indication: Maternal therapy to enhance foetal lung maturity
  5. HYDROCORTISONE [Concomitant]
     Active Substance: HYDROCORTISONE
     Indication: Stress management
     Dosage: 100 MG
  6. HYDROCORTISONE [Concomitant]
     Active Substance: HYDROCORTISONE
     Dosage: 20 MG
  7. HYDROCORTISONE [Concomitant]
     Active Substance: HYDROCORTISONE
     Dosage: 10 MG

REACTIONS (3)
  - Cushing^s syndrome [Recovered/Resolved]
  - Exposure during pregnancy [Unknown]
  - Drug ineffective [Unknown]
